FAERS Safety Report 19841539 (Version 1)
Quarter: 2021Q3

REPORT INFORMATION
  Report Type: Spontaneous
  Country: US (occurrence: US)
  Receive Date: 20210915
  Receipt Date: 20210915
  Transmission Date: 20211014
  Serious: No
  Sender: FDA-Public Use
  Company Number: US-JACOBUS PHARMACEUTICAL COMPANY, INC.-2118417

PATIENT
  Age: 39 Year
  Sex: Female

DRUGS (7)
  1. FOLIC ACID. [Concomitant]
     Active Substance: FOLIC ACID
  2. ZOLOFT [Concomitant]
     Active Substance: SERTRALINE HYDROCHLORIDE
  3. PREDNISONE. [Concomitant]
     Active Substance: PREDNISONE
  4. AZITHROMYCIN MONOHYDRATE. [Concomitant]
     Active Substance: AZITHROMYCIN MONOHYDRATE
  5. RUZURGI [Suspect]
     Active Substance: AMIFAMPRIDINE
     Indication: CONGENITAL MYASTHENIC SYNDROME
     Route: 048
     Dates: start: 20200227
  6. MESTINON [Concomitant]
     Active Substance: PYRIDOSTIGMINE BROMIDE
  7. METHOTREXATE. [Concomitant]
     Active Substance: METHOTREXATE

REACTIONS (4)
  - Respiratory tract infection [Unknown]
  - Hypersensitivity [Unknown]
  - Fungal infection [Unknown]
  - Dyspnoea [Unknown]
